FAERS Safety Report 19951427 (Version 2)
Quarter: 2021Q4

REPORT INFORMATION
  Report Type: Spontaneous
  Country: US (occurrence: US)
  Receive Date: 20211014
  Receipt Date: 20211021
  Transmission Date: 20220303
  Serious: Yes (Hospitalization, Other)
  Sender: FDA-Public Use
  Company Number: US-CIPLA LTD.-2021US06739

PATIENT

DRUGS (6)
  1. CARBOPLATIN [Interacting]
     Active Substance: CARBOPLATIN
     Indication: Anal squamous cell carcinoma
     Dosage: UNK, 4 CYCLICAL
     Route: 065
  2. PACLITAXEL [Interacting]
     Active Substance: PACLITAXEL
     Indication: Anal squamous cell carcinoma
     Dosage: UNK, 4 CYCLICAL
     Route: 065
  3. PACLITAXEL [Interacting]
     Active Substance: PACLITAXEL
     Indication: Breast cancer
  4. NIVOLUMAB [Interacting]
     Active Substance: NIVOLUMAB
     Indication: Anal squamous cell carcinoma
     Dosage: UNK, 4 CYCLICAL
     Route: 065
  5. NIVOLUMAB [Interacting]
     Active Substance: NIVOLUMAB
     Indication: Breast cancer
  6. PROCHLORPERAZINE [Suspect]
     Active Substance: PROCHLORPERAZINE
     Indication: Product used for unknown indication
     Dosage: UNK
     Route: 065

REACTIONS (3)
  - Urinary tract infection pseudomonal [Unknown]
  - Parkinsonism [Recovering/Resolving]
  - Drug interaction [Unknown]
